FAERS Safety Report 20186784 (Version 4)
Quarter: 2022Q3

REPORT INFORMATION
  Report Type: Report from Study
  Country: CA (occurrence: CA)
  Receive Date: 20211215
  Receipt Date: 20220712
  Transmission Date: 20221027
  Serious: Yes (Death, Hospitalization, Other)
  Sender: FDA-Public Use
  Company Number: CA-GLAXOSMITHKLINE-CA2021AMR198708

PATIENT

DRUGS (6)
  1. MEPOLIZUMAB [Suspect]
     Active Substance: MEPOLIZUMAB
     Indication: Asthma
     Dosage: 100 MG, Z, EVERY 4 WEEKS
     Route: 058
     Dates: start: 20190617
  2. MEPOLIZUMAB [Suspect]
     Active Substance: MEPOLIZUMAB
     Indication: Asthma
     Dosage: 100 MG, Z, EVERY 4 WEEKS
     Route: 058
     Dates: start: 20190617
  3. MEPOLIZUMAB [Suspect]
     Active Substance: MEPOLIZUMAB
     Indication: Asthma
     Dosage: 100 MG, Z
     Route: 058
     Dates: start: 20190617
  4. OXYGEN [Concomitant]
     Active Substance: OXYGEN
     Indication: Respiratory disorder
     Dosage: 18 HOUR/DAY
     Dates: start: 202111
  5. OXYGEN [Concomitant]
     Active Substance: OXYGEN
     Dosage: 2 L/MIN
  6. ASMANEX [Concomitant]
     Active Substance: MOMETASONE FUROATE
     Indication: Product used for unknown indication
     Dosage: 400 MG, BID

REACTIONS (5)
  - Death [Fatal]
  - Hospitalisation [Unknown]
  - Pneumonia [Unknown]
  - Pulmonary function test decreased [Unknown]
  - Dyspnoea [Unknown]
